FAERS Safety Report 9758361 (Version 1)
Quarter: 2013Q4

REPORT INFORMATION
  Report Type: Other
  Country: US (occurrence: US)
  Receive Date: 20131216
  Receipt Date: 20131216
  Transmission Date: 20140711
  Serious: Yes (Death)
  Sender: FDA-Public Use
  Company Number: US-SHIRE-ALL1-2013-08654

PATIENT
  Age: 53 Year
  Sex: Male

DRUGS (1)
  1. FOSRENOL [Suspect]
     Indication: RENAL FAILURE CHRONIC
     Dosage: 2000 MG (TWO 1000 MG TABLETS), OTHER (5 TIMES DAILY)
     Route: 048
     Dates: start: 201112

REACTIONS (2)
  - Death [Fatal]
  - Prescribed overdose [Not Recovered/Not Resolved]
